FAERS Safety Report 17446705 (Version 1)
Quarter: 2020Q1

REPORT INFORMATION
  Report Type: Spontaneous
  Country: US (occurrence: US)
  Receive Date: 20200221
  Receipt Date: 20200221
  Transmission Date: 20200409
  Serious: Yes (Other)
  Sender: FDA-Public Use
  Company Number: NVSC2020US047862

PATIENT
  Age: 34 Year
  Sex: Male

DRUGS (2)
  1. CEFTRIAXONE. [Suspect]
     Active Substance: CEFTRIAXONE
     Indication: SEXUALLY TRANSMITTED DISEASE
     Dosage: 250 MG
     Route: 030
  2. AZITHROMYCIN ANHYDROUS. [Concomitant]
     Active Substance: AZITHROMYCIN ANHYDROUS
     Indication: SEXUALLY TRANSMITTED DISEASE
     Dosage: 1 G
     Route: 048

REACTIONS (6)
  - Vomiting [Recovering/Resolving]
  - Cholecystitis acute [Recovering/Resolving]
  - Pancreatitis acute [Recovering/Resolving]
  - Cholelithiasis [Recovering/Resolving]
  - Nausea [Recovering/Resolving]
  - Abdominal tenderness [Recovering/Resolving]
